FAERS Safety Report 16612130 (Version 1)
Quarter: 2019Q3

REPORT INFORMATION
  Report Type: Spontaneous
  Country: US (occurrence: US)
  Receive Date: 20190722
  Receipt Date: 20190722
  Transmission Date: 20191004
  Serious: Yes (Hospitalization)
  Sender: FDA-Public Use
  Company Number: PHEH2019US029875

PATIENT
  Sex: Male

DRUGS (3)
  1. ENTRESTO [Suspect]
     Active Substance: SACUBITRIL\VALSARTAN
     Indication: CARDIAC FAILURE
     Dosage: 200 MG (97/103 MG), BID
     Route: 048
  2. ENTRESTO [Suspect]
     Active Substance: SACUBITRIL\VALSARTAN
     Dosage: 0.5 DF, BID (HALF TABLET OF 24/26 MG (SPLIT TABLETS))
     Route: 048
  3. DIOVAN [Suspect]
     Active Substance: VALSARTAN
     Indication: CARDIAC FAILURE
     Dosage: 160 MG, BID
     Route: 065

REACTIONS (6)
  - Underdose [Unknown]
  - Loss of consciousness [Recovered/Resolved]
  - Hypotension [Recovered/Resolved]
  - Wrong technique in product usage process [Unknown]
  - Fall [Recovered/Resolved]
  - Ventricular fibrillation [Recovered/Resolved]
